FAERS Safety Report 16363420 (Version 2)
Quarter: 2019Q3

REPORT INFORMATION
  Report Type: Spontaneous
  Country: CA (occurrence: CA)
  Receive Date: 20190528
  Receipt Date: 20190702
  Transmission Date: 20191004
  Serious: Yes (Life-Threatening, Hospitalization, Other)
  Sender: FDA-Public Use
  Company Number: CA-FERRINGPH-2019FE02947

PATIENT
  Age: 32 Year
  Sex: Female
  Weight: 77 kg

DRUGS (2)
  1. CERVIDIL [Suspect]
     Active Substance: DINOPROSTONE
     Indication: INDUCTION OF CERVIX RIPENING
     Dosage: ONCE/SINGLE
     Route: 015
     Dates: start: 2018, end: 2018
  2. MATERNA                            /02266601/ [Concomitant]
     Active Substance: MINERALS\VITAMINS
     Indication: PRODUCT USED FOR UNKNOWN INDICATION
     Dosage: 1 DF, FOR 6 MONTHS
     Route: 065

REACTIONS (5)
  - Uterine hypotonus [Recovered/Resolved]
  - Premature separation of placenta [Recovered/Resolved]
  - Incorrect route of product administration [Recovered/Resolved]
  - Postpartum haemorrhage [Recovered/Resolved]
  - Uterine atony [Recovered/Resolved]

NARRATIVE: CASE EVENT DATE: 2018
